FAERS Safety Report 10979923 (Version 1)
Quarter: 2015Q2

REPORT INFORMATION
  Report Type: Report from Study
  Country: CN (occurrence: CN)
  Receive Date: 20150402
  Receipt Date: 20150402
  Transmission Date: 20150821
  Serious: Yes (Other)
  Sender: FDA-Public Use
  Company Number: CN-BAXTER-2015BAX017788

PATIENT
  Sex: Female

DRUGS (5)
  1. PREDNISONE. [Suspect]
     Active Substance: PREDNISONE
     Indication: IMMUNOSUPPRESSANT DRUG THERAPY
     Dosage: 0.5-1 MG/KG PER DAY INITIAL DOSAGE
     Route: 065
  2. PREDNISONE. [Suspect]
     Active Substance: PREDNISONE
     Indication: LUPUS NEPHRITIS
     Dosage: AFTER 4 WEEKS, DOSE TAPERED BY 2.5 MG EVERY 2 WEEKS
     Route: 065
  3. ENDOXAN 1G [Suspect]
     Active Substance: CYCLOPHOSPHAMIDE
     Indication: IMMUNOSUPPRESSANT DRUG THERAPY
     Dosage: 500 MG/M2 OF BODY SURFACE AREA
     Route: 042
  4. ENDOXAN 1G [Suspect]
     Active Substance: CYCLOPHOSPHAMIDE
     Indication: LUPUS NEPHRITIS
     Dosage: SUBSEQUENT DOSES WERE INCREASED BY 250 MG (MAX: 1500MG PER PULSE)
     Route: 042
  5. PREDNISONE. [Suspect]
     Active Substance: PREDNISONE
     Dosage: 5-7.5 MG PREDNISONE PER DAY MAINTAINED FOR REMAINING TIME
     Route: 065

REACTIONS (1)
  - Blood creatinine increased [Unknown]
